FAERS Safety Report 8074989-6 (Version None)
Quarter: 2012Q1

REPORT INFORMATION
  Report Type: 
  Country: None (occurrence: None)
  Receive Date: 20120127
  Receipt Date: 20120118
  Transmission Date: 20120608
  Serious: No
  Sender: FDA-Public Use
  Company Number: US-BIOGENIDEC-2010BI036151

PATIENT
  Age: 40 Year
  Sex: Female

DRUGS (2)
  1. GILENYA [Concomitant]
  2. TYSABRI [Suspect]
     Indication: MULTIPLE SCLEROSIS
     Route: 042
     Dates: start: 20080111, end: 20100617

REACTIONS (7)
  - OSCILLOPSIA [None]
  - VISION BLURRED [None]
  - EYES SUNKEN [None]
  - ALOPECIA [None]
  - URINARY TRACT INFECTION [None]
  - PALLOR [None]
  - FATIGUE [None]
